FAERS Safety Report 7330063-5 (Version None)
Quarter: 2011Q1

REPORT INFORMATION
  Report Type: 
  Country: None (occurrence: None)
  Receive Date: 20110303
  Receipt Date: 20100928
  Transmission Date: 20110831
  Serious: Yes (Hospitalization, Other)
  Sender: FDA-Public Use
  Company Number: US-BAYER-201033767NA

PATIENT
  Sex: Female
  Weight: 55.782 kg

DRUGS (12)
  1. OCELLA [Suspect]
     Indication: PRODUCT USED FOR UNKNOWN INDICATION
     Route: 048
  2. NAPROSYN [Concomitant]
     Indication: PAIN
     Dosage: 500 MG BID WITH FOOD, PRN PAIN
  3. AMOXICILLIN [Concomitant]
     Dosage: 875 MG, BID
     Route: 048
  4. YAZ [Suspect]
     Indication: PREMENSTRUAL SYNDROME
     Dosage: 1 TAB DAILY
     Route: 048
     Dates: start: 20070801
  5. YAZ [Suspect]
  6. MEPROZINE [Concomitant]
     Dosage: 50MG / 25MG
  7. ALBUTEROL [Concomitant]
     Indication: ASTHMA
     Dosage: 20 ML QID, PRN
     Route: 055
  8. DIFLUCAN [Concomitant]
     Dosage: 150 MG, QD
  9. PREDNISONE [Concomitant]
     Dosage: 20 MG, TID
     Route: 048
  10. YASMIN [Suspect]
     Indication: PRODUCT USED FOR UNKNOWN INDICATION
     Route: 048
  11. TYLENOL W/ CODEINE NO. 3 [Concomitant]
     Dosage: 30-300MG, QID
     Dates: start: 20071210
  12. AZITHROMYCIN [Concomitant]
     Dosage: 250 MG, UNK

REACTIONS (4)
  - CHOLECYSTITIS ACUTE [None]
  - CHOLECYSTITIS CHRONIC [None]
  - CHOLELITHIASIS [None]
  - PAIN [None]
